FAERS Safety Report 7546491-9 (Version None)
Quarter: 2011Q2

REPORT INFORMATION
  Report Type: 
  Country: None (occurrence: None)
  Receive Date: 20110614
  Receipt Date: 20110603
  Transmission Date: 20111010
  Serious: Yes (Death, Other)
  Sender: FDA-Public Use
  Company Number: PL-TEVA-285110ISR

PATIENT
  Sex: Male

DRUGS (9)
  1. QUINAPRIL HYDROCHLORIDE [Concomitant]
     Dosage: 5 MILLIGRAM;
     Route: 048
  2. BISOPROLOL (BISORATIO) [Concomitant]
     Dosage: 5 MILLIGRAM;
     Route: 048
  3. FUROSEMIDE [Concomitant]
     Route: 048
     Dates: start: 20110423
  4. ETOPOSIDE [Concomitant]
     Indication: SMALL CELL LUNG CANCER STAGE UNSPECIFIED
     Dosage: 720 MILLIGRAM;
     Route: 042
     Dates: start: 20110420, end: 20110423
  5. POTASSIUM CHLORIDE (KALIPOZ) [Concomitant]
     Dosage: 391 MG K+
     Route: 048
     Dates: start: 20110423
  6. DIHYDROCODEINE BITARTRATE INJ [Concomitant]
     Dosage: 120 MILLIGRAM;
     Route: 048
  7. OMEPRAZOLE (POLPRAZOL) [Concomitant]
     Dosage: 20 MILLIGRAM;
     Route: 048
  8. CISPLATIN [Suspect]
     Indication: SMALL CELL LUNG CANCER STAGE UNSPECIFIED
     Dosage: 80 MILLIGRAM;
     Route: 042
     Dates: start: 20110420, end: 20110423
  9. AMLODIPINE (AMLOZEK) [Concomitant]
     Dosage: 5 MILLIGRAM;
     Route: 048

REACTIONS (7)
  - ANAEMIA [None]
  - HYPOTENSION [None]
  - PNEUMONIA [None]
  - CARDIOPULMONARY FAILURE [None]
  - LEUKOPENIA [None]
  - DYSPNOEA [None]
  - CARDIAC FAILURE [None]
